FAERS Safety Report 10216062 (Version 5)
Quarter: 2014Q3

REPORT INFORMATION
  Report Type: Report from Study
  Country: ES (occurrence: ES)
  Receive Date: 20140604
  Receipt Date: 20140922
  Transmission Date: 20150326
  Serious: Yes (Life-Threatening, Hospitalization)
  Sender: FDA-Public Use
  Company Number: ES-BEH-2014043036

PATIENT
  Age: 47 Year
  Sex: Female
  Weight: 57.8 kg

DRUGS (23)
  1. PRIVIGEN [Suspect]
     Active Substance: HUMAN IMMUNOGLOBULIN G
     Dosage: INITIAL INFUSION RATE 16 ML/H, MAXIMUM INFUSION RATE 110 ML/H
     Dates: start: 20140203, end: 20140203
  2. SALBUTAMOL [Concomitant]
     Active Substance: ALBUTEROL
     Indication: CHRONIC OBSTRUCTIVE PULMONARY DISEASE
     Dosage: START DATE: ??-JAN-2013
     Route: 055
  3. IBUPROFEN. [Concomitant]
     Active Substance: IBUPROFEN
     Indication: NEURALGIA
     Dosage: START DATE ??-???-2007
     Route: 048
  4. PRIVIGEN [Suspect]
     Active Substance: HUMAN IMMUNOGLOBULIN G
     Dosage: INITIAL INFUSION RATE: 17 ML/H, MAXIMUM INFUSION RATE 120 ML / H
     Dates: start: 20131202, end: 20131202
  5. PRIVIGEN [Suspect]
     Active Substance: HUMAN IMMUNOGLOBULIN G
     Dosage: INITIAL INFUSION RATE 17 ML / H, MAXIMUM INFUSION RATE 120 ML / H
     Dates: start: 20131204, end: 20131204
  6. OTHER ANTI-ASTHMATICS, INHALANTS [Concomitant]
     Indication: CHRONIC OBSTRUCTIVE PULMONARY DISEASE
     Dosage: STARD DATE ??-JAN-2013
     Route: 055
  7. AMITRIPTYLIN [Concomitant]
     Active Substance: AMITRIPTYLINE
     Indication: NEURALGIA
     Route: 048
  8. PRIVIGEN [Suspect]
     Active Substance: HUMAN IMMUNOGLOBULIN G
     Indication: CHRONIC INFLAMMATORY DEMYELINATING POLYRADICULONEUROPATHY
     Dosage: INITIAL INFUSION RATE 17 ML / H, MAXIMUM INFUSION RATE 120 ML / H
     Dates: start: 20131203, end: 20131203
  9. PREDNISONE. [Concomitant]
     Active Substance: PREDNISONE
     Indication: CHRONIC INFLAMMATORY DEMYELINATING POLYRADICULONEUROPATHY
     Dates: start: 20140325, end: 20140513
  10. GABAPENTIN. [Concomitant]
     Active Substance: GABAPENTIN
     Indication: NEURALGIA
     Dosage: START DATE ??-???-2007
     Route: 048
  11. FLEBOGAMMA [Concomitant]
     Active Substance: HUMAN IMMUNOGLOBULIN G
     Indication: CHRONIC INFLAMMATORY DEMYELINATING POLYRADICULONEUROPATHY
     Dates: start: 20140401, end: 20140405
  12. PRIVIGEN [Suspect]
     Active Substance: HUMAN IMMUNOGLOBULIN G
     Dosage: INITIAL INFUSION RATE 16 ML / H, MAXIMUM INFUSION RATE 110 ML/H
     Dates: start: 20140113, end: 20140113
  13. PRIVIGEN [Suspect]
     Active Substance: HUMAN IMMUNOGLOBULIN G
     Dosage: INITIAL INFUSION RATE 16ML / H, MAXIMUM INFUSION RATE 70 ML /H
     Dates: start: 20140204, end: 20140204
  14. PAROXETINE [Concomitant]
     Active Substance: PAROXETINE\PAROXETINE HYDROCHLORIDE
     Indication: DEPRESSION
     Dosage: STARD DATE ??-???-2007
     Route: 048
  15. PREDNISONE. [Concomitant]
     Active Substance: PREDNISONE
     Dates: start: 20140325, end: 20140513
  16. PRIVIGEN [Suspect]
     Active Substance: HUMAN IMMUNOGLOBULIN G
     Dosage: INITIAL INFUSION RATE: 16 ML / H, MAXIMUM INFUSION RATE 110 ML / H
     Dates: start: 20131223, end: 20131223
  17. TRAZODONE HYDROCHLORIDE. [Concomitant]
     Active Substance: TRAZODONE HYDROCHLORIDE
     Indication: DEPRESSION
     Dosage: START DATE ??-???-1999
     Route: 048
  18. FERROUS SULFATE [Concomitant]
     Active Substance: FERROUS SULFATE\FERROUS SULFATE, DRIED
     Indication: IRON DEFICIENCY ANAEMIA
     Dosage: START DATE ??-MAY-2013
     Route: 048
  19. PRIVIGEN [Suspect]
     Active Substance: HUMAN IMMUNOGLOBULIN G
     Dosage: INITIAL INFUSION RATE: 16 ML / H, MAXIMUM INFUSION RATE 110ML / H
     Dates: start: 20131224, end: 20131224
  20. PRIVIGEN [Suspect]
     Active Substance: HUMAN IMMUNOGLOBULIN G
     Dosage: INITIAL INFUSION RATE 16 ML / H, MAXIMUM INFUSION RATE 110ML /H
     Dates: start: 20140114, end: 20140114
  21. OMEPRAZOL [Concomitant]
     Active Substance: OMEPRAZOLE
     Indication: PROPHYLAXIS
     Dosage: START DATE ??-???-2001
     Route: 048
  22. PREDNISONE. [Concomitant]
     Active Substance: PREDNISONE
     Dosage: START DATE ??-AUG-2013
     Route: 048
     Dates: end: 20140227
  23. RITUXIMAB [Concomitant]
     Active Substance: RITUXIMAB
     Indication: CHRONIC INFLAMMATORY DEMYELINATING POLYRADICULONEUROPATHY
     Dates: start: 20140327, end: 20140409

REACTIONS (2)
  - Vena cava thrombosis [Recovered/Resolved]
  - Pelvic venous thrombosis [Recovered/Resolved]

NARRATIVE: CASE EVENT DATE: 20140414
